FAERS Safety Report 22911004 (Version 4)
Quarter: 2023Q4

REPORT INFORMATION
  Report Type: Report from Study
  Country: US (occurrence: US)
  Receive Date: 20230906
  Receipt Date: 20231006
  Transmission Date: 20240109
  Serious: No
  Sender: FDA-Public Use
  Company Number: US-002147023-NVSC2023US192658

PATIENT
  Sex: Male

DRUGS (1)
  1. ENTRESTO [Suspect]
     Active Substance: SACUBITRIL\VALSARTAN
     Indication: Product used for unknown indication
     Dosage: UNK
     Route: 065
     Dates: start: 20230831

REACTIONS (6)
  - Polyuria [Unknown]
  - Dry mouth [Unknown]
  - Throat clearing [Unknown]
  - Nasopharyngitis [Unknown]
  - Pyrexia [Unknown]
  - Product dose omission issue [Unknown]
